FAERS Safety Report 8254581-0 (Version None)
Quarter: 2012Q2

REPORT INFORMATION
  Report Type: 
  Country: None (occurrence: None)
  Receive Date: 20120403
  Receipt Date: 20120322
  Transmission Date: 20120825
  Serious: Yes (Hospitalization, Other)
  Sender: FDA-Public Use
  Company Number: JP-SP-2012-03560

PATIENT
  Age: 79 Year
  Sex: Male

DRUGS (2)
  1. IMMUCYST [Suspect]
     Indication: BLADDER CANCER
     Route: 043
     Dates: start: 20120302, end: 20120309
  2. LEVOFLOXACIN [Suspect]
     Route: 065

REACTIONS (1)
  - PLATELET COUNT DECREASED [None]
